FAERS Safety Report 5997991-4 (Version None)
Quarter: 2008Q4

REPORT INFORMATION
  Report Type: 
  Country: None (occurrence: None)
  Receive Date: 20081211
  Receipt Date: 20081202
  Transmission Date: 20090506
  Serious: No
  Sender: FDA-Public Use
  Company Number: C-08-0087-W

PATIENT
  Age: 80 Year
  Sex: Male
  Weight: 84.369 kg

DRUGS (1)
  1. LISINOPRIL [Suspect]
     Indication: HYPERTENSION
     Dosage: 40 MG TABLET/DAY/ORAL
     Route: 048
     Dates: start: 20081112

REACTIONS (6)
  - BLOOD PRESSURE SYSTOLIC INCREASED [None]
  - DISEASE PROGRESSION [None]
  - INCORRECT DOSE ADMINISTERED [None]
  - MEDICATION ERROR [None]
  - PRODUCT QUALITY ISSUE [None]
  - THERAPEUTIC RESPONSE UNEXPECTED WITH DRUG SUBSTITUTION [None]
